FAERS Safety Report 21263905 (Version 1)
Quarter: 2022Q3

REPORT INFORMATION
  Report Type: Spontaneous
  Country: US (occurrence: US)
  Receive Date: 20220829
  Receipt Date: 20220829
  Transmission Date: 20221026
  Serious: Yes (Hospitalization, Other)
  Sender: FDA-Public Use
  Company Number: US-BRISTOL-MYERS SQUIBB COMPANY-2022-091600

PATIENT
  Age: 79 Year
  Sex: Female
  Weight: 115.67 kg

DRUGS (1)
  1. REVLIMID [Suspect]
     Active Substance: LENALIDOMIDE
     Indication: Plasma cell myeloma
     Dosage: FREQUENCY ONCE DAILY X 21 DAYS ON, THEN 7 DAYS OFF
     Route: 048
     Dates: start: 20120828

REACTIONS (6)
  - Product temperature excursion issue [Unknown]
  - Hernia [Unknown]
  - Product storage error [Unknown]
  - Product dose omission issue [Unknown]
  - Device related sepsis [Unknown]
  - Fungal sepsis [Unknown]

NARRATIVE: CASE EVENT DATE: 20220301
